FAERS Safety Report 25118802 (Version 1)
Quarter: 2025Q1

REPORT INFORMATION
  Report Type: Report from Study
  Country: US (occurrence: US)
  Receive Date: 20250325
  Receipt Date: 20250325
  Transmission Date: 20250409
  Serious: Yes (Life-Threatening)
  Sender: TAIHO ONCOLOGY INC
  Company Number: US-TAIHOP-2025-003113

PATIENT
  Age: 79 Year
  Sex: Female

DRUGS (1)
  1. LONSURF [Suspect]
     Active Substance: TIPIRACIL HYDROCHLORIDE\TRIFLURIDINE
     Indication: Product used for unknown indication
     Route: 048

REACTIONS (2)
  - Illness [Unknown]
  - Muscular weakness [Unknown]
